FAERS Safety Report 20989071 (Version 1)
Quarter: 2022Q2

REPORT INFORMATION
  Report Type: Report from Study
  Country: US (occurrence: None)
  Receive Date: 20220621
  Receipt Date: 20220621
  Transmission Date: 20220720
  Serious: Yes (Hospitalization)
  Sender: FDA-Public Use
  Company Number: US-ROCHE-3119099

PATIENT
  Age: 61 Year
  Sex: Female
  Weight: 77.2 kg

DRUGS (13)
  1. ATEZOLIZUMAB [Suspect]
     Active Substance: ATEZOLIZUMAB
     Indication: Endometrial cancer
     Route: 041
     Dates: start: 20191106
  2. BEVACIZUMAB [Suspect]
     Active Substance: BEVACIZUMAB
     Indication: Endometrial cancer
     Route: 042
     Dates: start: 20191106
  3. WELLBUTRIN XL [Concomitant]
     Active Substance: BUPROPION HYDROCHLORIDE
     Route: 048
  4. AMLODIPINE [Concomitant]
     Active Substance: AMLODIPINE BESYLATE
  5. MAGNESIUM OXIDE [Concomitant]
     Active Substance: MAGNESIUM OXIDE
     Dosage: 1 TABLET
     Route: 048
  6. IBUPROFEN [Concomitant]
     Active Substance: IBUPROFEN
     Dosage: 1 TABLET
  7. LYSINE [Concomitant]
     Active Substance: LYSINE
     Dosage: 1 TABLET
  8. HYDROCHLOROTHIAZIDE [Concomitant]
     Active Substance: HYDROCHLOROTHIAZIDE
     Route: 048
  9. MUCINEX [Concomitant]
     Active Substance: GUAIFENESIN
  10. ZYRTEC [Concomitant]
     Active Substance: CETIRIZINE HYDROCHLORIDE
     Route: 048
  11. BENADRYL [Concomitant]
     Active Substance: DIPHENHYDRAMINE HYDROCHLORIDE
     Dosage: 1 TABLET
  12. BACLOFEN [Concomitant]
     Active Substance: BACLOFEN
     Route: 048
  13. COREG [Concomitant]
     Active Substance: CARVEDILOL

REACTIONS (6)
  - Dehydration [Unknown]
  - Hypotension [Unknown]
  - Fall [Unknown]
  - Diarrhoea [Unknown]
  - Decreased appetite [Unknown]
  - Syncope [Unknown]

NARRATIVE: CASE EVENT DATE: 20220323
